FAERS Safety Report 19483762 (Version 1)
Quarter: 2021Q3

REPORT INFORMATION
  Report Type: Other
  Country: US (occurrence: US)
  Receive Date: 20210701
  Receipt Date: 20210701
  Transmission Date: 20211014
  Serious: No
  Sender: FDA-Public Use
  Company Number: US-ROCHE-2802378

PATIENT
  Sex: Female

DRUGS (2)
  1. CLONAZEPAM. [Suspect]
     Active Substance: CLONAZEPAM
     Indication: SEIZURE
     Route: 065
  2. PERAMPANEL [Concomitant]
     Active Substance: PERAMPANEL
     Indication: SEIZURE
     Dosage: 2 TO }12 MG DAILY, PERAMPANEL DOSE WAS INCREASED TO 6 MG/DAY FOLLOWING POSITIVE PREGNANCY TEST, TO 1
     Route: 065

REACTIONS (1)
  - Maternal exposure during pregnancy [Unknown]
